FAERS Safety Report 11330767 (Version 1)
Quarter: 2015Q3

REPORT INFORMATION
  Report Type: Spontaneous
  Country: US (occurrence: US)
  Receive Date: 20150803
  Receipt Date: 20150803
  Transmission Date: 20151125
  Serious: No
  Sender: FDA-Public Use
  Company Number: US-GLAXOSMITHKLINE-US2015GSK106247

PATIENT
  Sex: Female
  Weight: 55.8 kg

DRUGS (16)
  1. LATISSE [Concomitant]
     Active Substance: BIMATOPROST
  2. GLUCOSAMINE [Concomitant]
     Active Substance: GLUCOSAMINE
  3. ZOFRAN [Concomitant]
     Active Substance: ONDANSETRON HYDROCHLORIDE
  4. SOMA [Concomitant]
     Active Substance: CARISOPRODOL
  5. CALCIUM [Concomitant]
     Active Substance: CALCIUM
  6. COQ10 [Concomitant]
     Active Substance: UBIDECARENONE
  7. FISH OIL [Concomitant]
     Active Substance: FISH OIL
  8. FLONASE [Concomitant]
     Active Substance: FLUTICASONE PROPIONATE
  9. OXYCODONE [Concomitant]
     Active Substance: OXYCODONE
  10. TYLENOL [Concomitant]
     Active Substance: ACETAMINOPHEN
  11. ZINC SULFATE [Concomitant]
     Active Substance: ZINC SULFATE\ZINC SULFATE ANHYDROUS
  12. GABAPENTIN. [Concomitant]
     Active Substance: GABAPENTIN
  13. ALBUTEROL. [Concomitant]
     Active Substance: ALBUTEROL
  14. LYSINE [Concomitant]
     Active Substance: LYSINE
  15. TYKERB [Suspect]
     Active Substance: LAPATINIB DITOSYLATE
     Indication: BREAST CANCER
     Dosage: 1000 MG, QD
     Route: 048
     Dates: start: 20150605
  16. VITAMIN B6 [Concomitant]
     Active Substance: PYRIDOXINE HYDROCHLORIDE

REACTIONS (2)
  - Blister [Unknown]
  - Adverse drug reaction [Unknown]
